FAERS Safety Report 21612575 (Version 2)
Quarter: 2022Q4

REPORT INFORMATION
  Report Type: Spontaneous
  Country: US (occurrence: US)
  Receive Date: 20221118
  Receipt Date: 20221118
  Transmission Date: 20230113
  Serious: No
  Sender: FDA-Public Use
  Company Number: US-BION-010322

PATIENT
  Age: 63 Year
  Sex: Male

DRUGS (5)
  1. VITAMIN D3 [Suspect]
     Active Substance: CHOLECALCIFEROL
     Indication: Product used for unknown indication
  2. ORGOVYX [Suspect]
     Active Substance: RELUGOLIX
     Indication: Prostate cancer
     Dosage: STRENGTH: 120MG, ONE TIME DOSE
     Route: 048
     Dates: start: 20211006, end: 20211006
  3. ABIRATERONE [Concomitant]
     Active Substance: ABIRATERONE
     Dates: start: 202110, end: 202204
  4. PREDNISONE [Concomitant]
     Active Substance: PREDNISONE
  5. ORGOVYX [Suspect]
     Active Substance: RELUGOLIX
     Indication: Prostate cancer
     Dosage: STRENGTH: 120MG, ONE TIME DOSE
     Route: 048
     Dates: start: 20211007, end: 202204

REACTIONS (6)
  - Fatigue [Not Recovered/Not Resolved]
  - Libido decreased [Unknown]
  - Asthenia [Not Recovered/Not Resolved]
  - Weight increased [Unknown]
  - Diarrhoea [Recovered/Resolved]
  - Hot flush [Not Recovered/Not Resolved]

NARRATIVE: CASE EVENT DATE: 20220209
